FAERS Safety Report 20572942 (Version 1)
Quarter: 2022Q1

REPORT INFORMATION
  Report Type: Other
  Country: US (occurrence: None)
  Receive Date: 20220309
  Receipt Date: 20220309
  Transmission Date: 20220423
  Serious: Yes (Other)
  Sender: FDA-Public Use
  Company Number: US-ROCHE-3025266

PATIENT
  Sex: Female

DRUGS (2)
  1. XELODA [Suspect]
     Active Substance: CAPECITABINE
     Indication: Breast cancer metastatic
     Dosage: TAKE 1 TABLET BY MOUTH IN THE MORNING AND IN THE EVENING 2 WEEK(S) ON, 1 WEEK(S) OFF
     Route: 048
  2. XELODA [Suspect]
     Active Substance: CAPECITABINE
     Indication: Metastases to bone
     Dosage: TAKE 4 TABLET(S) BY MOUTH IN THE MORNING AND IN THE EVENING 2 WEEK(S) ON, 1 WEEK(S) OFF
     Route: 048

REACTIONS (2)
  - COVID-19 [Unknown]
  - Diabetes mellitus [Unknown]
